FAERS Safety Report 7683553-X (Version None)
Quarter: 2011Q3

REPORT INFORMATION
  Report Type: 
  Country: None (occurrence: None)
  Receive Date: 20110815
  Receipt Date: 20110809
  Transmission Date: 20111222
  Serious: Yes (Death, Hospitalization, Other)
  Sender: FDA-Public Use
  Company Number: US-ASTRAZENECA-2009UW02400

PATIENT
  Age: 79 Year
  Sex: Female

DRUGS (5)
  1. TOPROL-XL [Suspect]
     Indication: CARDIAC FAILURE CONGESTIVE
     Route: 048
  2. PULMICORT [Suspect]
     Indication: CHRONIC OBSTRUCTIVE PULMONARY DISEASE
     Route: 055
  3. TOPROL-XL [Suspect]
     Indication: ANGINA PECTORIS
     Route: 048
  4. TOPROL-XL [Suspect]
     Indication: HYPERTENSION
     Route: 048
  5. NEXIUM [Suspect]
     Indication: GASTROOESOPHAGEAL REFLUX DISEASE
     Route: 048

REACTIONS (7)
  - CARDIAC FAILURE CONGESTIVE [None]
  - PNEUMONIA [None]
  - CHRONIC OBSTRUCTIVE PULMONARY DISEASE [None]
  - HYPERTENSION [None]
  - ANGINA PECTORIS [None]
  - LUNG NEOPLASM MALIGNANT [None]
  - BRONCHITIS [None]
